FAERS Safety Report 5875876-1 (Version None)
Quarter: 2008Q3

REPORT INFORMATION
  Report Type: 
  Country: None (occurrence: None)
  Receive Date: 20080905
  Receipt Date: 20080801
  Transmission Date: 20090109
  Serious: Yes (Other)
  Sender: FDA-Public Use
  Company Number: 8035846

PATIENT
  Age: 30 Year
  Sex: Female

DRUGS (4)
  1. NIFEDIPINE [Suspect]
     Indication: PREMATURE LABOUR
     Dosage: 20 MG SBL
     Route: 060
  2. NIFEDIPINE [Suspect]
     Indication: PREMATURE LABOUR
     Dosage: PO
     Route: 048
  3. RITODRINE HYDROCHLORIDE [Suspect]
     Indication: PREMATURE LABOUR
     Dosage: IV
     Route: 042
  4. DIAZEPAM [Suspect]

REACTIONS (13)
  - ACUTE PULMONARY OEDEMA [None]
  - BLOOD PRESSURE DIASTOLIC DECREASED [None]
  - BREATH SOUNDS ABNORMAL [None]
  - CAESAREAN SECTION [None]
  - COUGH [None]
  - CREPITATIONS [None]
  - DRUG EXPOSURE DURING PREGNANCY [None]
  - DYSPNOEA [None]
  - ERYTHEMA [None]
  - HYPOCAPNIA [None]
  - HYPOXIA [None]
  - LEUKOCYTOSIS [None]
  - TACHYCARDIA [None]
